FAERS Safety Report 8114814-8 (Version None)
Quarter: 2012Q1

REPORT INFORMATION
  Report Type: 
  Country: None (occurrence: None)
  Receive Date: 20120206
  Receipt Date: 20120201
  Transmission Date: 20120608
  Serious: Yes (Hospitalization, Other)
  Sender: FDA-Public Use
  Company Number: PHHY2009JP38286

PATIENT
  Sex: Male
  Weight: 63 kg

DRUGS (4)
  1. TAMSULOSIN HCL [Concomitant]
     Indication: BENIGN PROSTATIC HYPERPLASIA
     Dosage: 0.4 MG, UNK
     Dates: start: 20000101
  2. TASIGNA [Suspect]
     Indication: CHRONIC MYELOID LEUKAEMIA
     Dosage: 800 MG/DAY
     Route: 048
     Dates: start: 20090710, end: 20091112
  3. FLUCONAZOLE [Concomitant]
     Indication: TINEA INFECTION
     Dosage: 100 MG, UNK
     Route: 048
     Dates: start: 20090721, end: 20090818
  4. ISODINE [Concomitant]
     Indication: PROPHYLAXIS
     Dates: start: 20071216

REACTIONS (6)
  - TINEA PEDIS [None]
  - RASH [None]
  - DRUG INEFFECTIVE [None]
  - NEOPLASM PROGRESSION [None]
  - GAMMA-GLUTAMYLTRANSFERASE INCREASED [None]
  - CHRONIC MYELOID LEUKAEMIA [None]
